FAERS Safety Report 6816104-X (Version None)
Quarter: 2010Q3

REPORT INFORMATION
  Report Type: 
  Country: None (occurrence: None)
  Receive Date: 20100702
  Receipt Date: 20100702
  Transmission Date: 20110219
  Serious: Yes (Hospitalization)
  Sender: FDA-Public Use
  Company Number: None

PATIENT
  Age: 63 Year
  Sex: Male
  Weight: 72.6 kg

DRUGS (1)
  1. ONDANSETRON [Suspect]
     Indication: NAUSEA
     Dosage: 8 MG ONCE PO
     Route: 048
     Dates: start: 20100629, end: 20100629

REACTIONS (1)
  - ANGIOEDEMA [None]
